FAERS Safety Report 4715630-7 (Version None)
Quarter: 2005Q3

REPORT INFORMATION
  Report Type: 
  Country: None (occurrence: None)
  Receive Date: 20050715
  Receipt Date: 20050715
  Transmission Date: 20060218
  Serious: Yes (Hospitalization)
  Sender: FDA-Public Use
  Company Number: None

PATIENT
  Sex: Male
  Weight: 76 kg

DRUGS (8)
  1. FLUDARABINE PHOSPHATE [Suspect]
     Indication: CHRONIC MYELOID LEUKAEMIA
     Dosage: 48 MG QD X5D IV
     Route: 042
     Dates: start: 20050519, end: 20050523
  2. BUSULFAN [Suspect]
     Dosage: 333 MG QD X 4 D IV
     Route: 042
     Dates: start: 20050520, end: 20050523
  3. PROGRAF [Concomitant]
  4. PREVACID [Concomitant]
  5. HYDROCHLOROTHIAZIDE [Concomitant]
  6. VORICONAZOLE [Concomitant]
  7. BACTRIM [Concomitant]
  8. VALTREX [Concomitant]

REACTIONS (4)
  - GRAFT VERSUS HOST DISEASE [None]
  - LIVER FUNCTION TEST ABNORMAL [None]
  - ORAL INTAKE REDUCED [None]
  - RENAL FAILURE ACUTE [None]
